FAERS Safety Report 24015999 (Version 1)
Quarter: 2024Q2

REPORT INFORMATION
  Report Type: Spontaneous
  Country: US (occurrence: US)
  Receive Date: 20240626
  Receipt Date: 20240626
  Transmission Date: 20240715
  Serious: No
  Sender: FDA-Public Use
  Company Number: US-AMGEN-HZN-2023-010051

PATIENT
  Age: 59 Year
  Sex: Female

DRUGS (2)
  1. TEPEZZA [Suspect]
     Active Substance: TEPROTUMUMAB-TRBW
     Indication: Endocrine ophthalmopathy
     Dosage: UNK (FIRST INFUSION)
     Route: 042
     Dates: start: 20230919
  2. TEPEZZA [Suspect]
     Active Substance: TEPROTUMUMAB-TRBW
     Dosage: UNK EIGHTH INFUSION
     Route: 042
     Dates: start: 202402

REACTIONS (9)
  - Onychoclasis [Unknown]
  - Diplopia [Unknown]
  - Alopecia [Unknown]
  - Ear discomfort [Unknown]
  - Muscle spasms [Unknown]
  - Photophobia [Not Recovered/Not Resolved]
  - Fatigue [Unknown]
  - Onychoclasis [Unknown]
  - Glucose tolerance impaired [Unknown]

NARRATIVE: CASE EVENT DATE: 20230101
